FAERS Safety Report 9973128 (Version 1)
Quarter: 2014Q1

REPORT INFORMATION
  Report Type: Spontaneous
  Country: US (occurrence: None)
  Receive Date: 20140127
  Receipt Date: 20140127
  Transmission Date: 20141002
  Serious: Yes (Life-Threatening)
  Sender: FDA-Public Use
  Company Number: 1216816

PATIENT
  Age: 25 Year
  Sex: Male
  Weight: 107.96 kg

DRUGS (4)
  1. RITUXAN [Suspect]
     Indication: GRANULOMATOSIS WITH POLYANGIITIS
     Dosage: (1000 MG), INTRAVENOUS (NOT OTHERWISE SPECIFIED)?
     Route: 042
     Dates: start: 201210
  2. SOLU-MEDROL (METHYLPREDNISOLONE SODIUM SUCCINATE) [Concomitant]
  3. TYLENOL (PARACETAMOL) [Concomitant]
  4. CLARITIN (LORATADINE) [Concomitant]

REACTIONS (6)
  - Flushing [None]
  - Swelling face [None]
  - Urticaria [None]
  - Hypoaesthesia [None]
  - Throat tightness [None]
  - Erythema [None]
